FAERS Safety Report 5267503-1 (Version None)
Quarter: 2007Q1

REPORT INFORMATION
  Report Type: 
  Country: None (occurrence: None)
  Receive Date: 20061213
  Receipt Date: 20040305
  Transmission Date: 20070707
  Serious: No
  Sender: FDA-Public Use
  Company Number: 2004UW04164

PATIENT
  Age: 59 Year
  Sex: Female
  Weight: 49.8957 kg

DRUGS (3)
  1. TAMOXIFEN [Suspect]
     Indication: BREAST CANCER
     Dates: start: 19960101, end: 20011201
  2. ACTONEL [Concomitant]
  3. FOSAMAX [Concomitant]

REACTIONS (1)
  - DISEASE RECURRENCE [None]
